FAERS Safety Report 9604215 (Version 1)
Quarter: 2013Q2

REPORT INFORMATION
  Report Type: Spontaneous
  Country: US (occurrence: None)
  Receive Date: 20130408
  Receipt Date: 20130408
  Transmission Date: 20140414
  Serious: Yes (Hospitalization)
  Sender: FDA-Public Use
  Company Number: 36292

PATIENT
  Age: 68 Year
  Sex: Female
  Weight: 63.5 kg

DRUGS (6)
  1. GLASSIA [Suspect]
     Indication: ALPHA-1 ANTI-TRYPSIN DEFICIENCY
     Dosage: 60MG/KG, BIWEEKLY, IV
     Route: 042
     Dates: start: 201212, end: 20130204
  2. LISINOPRIL [Concomitant]
  3. LANOXIN [Concomitant]
  4. DILTIAZEM [Concomitant]
  5. PREDNISONE [Concomitant]
  6. SYNTHROID [Concomitant]

REACTIONS (8)
  - Pneumonia [None]
  - Hypertension [None]
  - Blood urine [None]
  - Dyspnoea [None]
  - Spinal fracture [None]
  - Aphagia [None]
  - Insomnia [None]
  - Osteoporotic fracture [None]
